FAERS Safety Report 24951797 (Version 2)
Quarter: 2025Q3

REPORT INFORMATION
  Report Type: Report from Study
  Country: CO (occurrence: CO)
  Receive Date: 20250210
  Receipt Date: 20250809
  Transmission Date: 20251021
  Serious: Yes (Hospitalization, Other)
  Sender: ALEXION PHARMACEUTICALS
  Company Number: CO-AstraZeneca-CH-00799008A

PATIENT
  Age: 71 Year
  Sex: Male

DRUGS (1)
  1. SODIUM ZIRCONIUM CYCLOSILICATE [Suspect]
     Active Substance: SODIUM ZIRCONIUM CYCLOSILICATE
     Indication: Hyperkalaemia
     Dates: start: 20231004

REACTIONS (3)
  - Pneumonia [Unknown]
  - Pyrexia [Unknown]
  - Nasal congestion [Unknown]

NARRATIVE: CASE EVENT DATE: 20250121
